FAERS Safety Report 5220904-X (Version None)
Quarter: 2007Q1

REPORT INFORMATION
  Report Type: 
  Country: None (occurrence: None)
  Receive Date: 20070126
  Receipt Date: 20070124
  Transmission Date: 20070707
  Serious: Yes (Other)
  Sender: FDA-Public Use
  Company Number: DE-GLAXOSMITHKLINE-D0051910A

PATIENT
  Age: 45 Year
  Sex: Male

DRUGS (3)
  1. LAMICTAL [Suspect]
     Indication: EPILEPSY
     Dosage: 100MG TWICE PER DAY
     Route: 048
     Dates: start: 20040601
  2. PHENHYDAN [Suspect]
     Indication: EPILEPSY
     Dosage: 3.5TAB IN THE MORNING
     Route: 048
  3. MAGNESIUM/CALCIUM MIXTURE (HOMEOPATHIC) [Suspect]
     Route: 048
     Dates: start: 20061201, end: 20061201

REACTIONS (2)
  - CONVULSION [None]
  - DRUG INTERACTION [None]
